FAERS Safety Report 4399240-X (Version None)
Quarter: 2004Q2

REPORT INFORMATION
  Report Type: 
  Country: None (occurrence: None)
  Receive Date: 20040621
  Receipt Date: 20031231
  Transmission Date: 20050107
  Serious: Yes (Other)
  Sender: FDA-Public Use
  Company Number: USA-2003-0008911

PATIENT
  Age: 36 Year
  Sex: Male
  Weight: 89.8 kg

DRUGS (2)
  1. OXYCONTIN [Suspect]
     Indication: PAIN
     Dosage: 20 MG, TID, ORAL
     Route: 048
  2. PERCOCET [Concomitant]

REACTIONS (20)
  - ASTHENIA [None]
  - CONFUSIONAL STATE [None]
  - DEPRESSION [None]
  - DRUG DEPENDENCE [None]
  - DRUG INEFFECTIVE [None]
  - DRUG TOLERANCE [None]
  - DRUG WITHDRAWAL SYNDROME [None]
  - HEADACHE [None]
  - HYPOAESTHESIA [None]
  - INSOMNIA [None]
  - IRRITABILITY [None]
  - MUSCLE SPASMS [None]
  - MUSCLE TIGHTNESS [None]
  - NERVOUSNESS [None]
  - PAIN EXACERBATED [None]
  - SEXUAL DYSFUNCTION [None]
  - STRESS SYMPTOMS [None]
  - SWELLING [None]
  - TREMOR [None]
  - WEIGHT DECREASED [None]
